FAERS Safety Report 7262622-2 (Version None)
Quarter: 2011Q1

REPORT INFORMATION
  Report Type: 
  Country: None (occurrence: None)
  Receive Date: 20110130
  Receipt Date: 20100913
  Transmission Date: 20110831
  Serious: No
  Sender: FDA-Public Use
  Company Number: US-ABBOTT-10P-163-0670574-00

PATIENT
  Age: 12 Year
  Sex: Male

DRUGS (5)
  1. HUMIRA [Suspect]
     Indication: JUVENILE ARTHRITIS
     Dates: end: 20100816
  2. METHOTREXATE [Concomitant]
     Indication: PRODUCT USED FOR UNKNOWN INDICATION
  3. CLARITIN [Concomitant]
     Indication: HYPERSENSITIVITY
     Dosage: PILL
     Route: 048
  4. FLONASE [Concomitant]
     Indication: HYPERSENSITIVITY
     Route: 045
  5. FOLIC ACID [Concomitant]
     Indication: PRODUCT USED FOR UNKNOWN INDICATION
     Route: 048

REACTIONS (3)
  - BRONCHITIS [None]
  - EAR INFECTION [None]
  - SINUSITIS [None]
